FAERS Safety Report 12788749 (Version 1)
Quarter: 2016Q3

REPORT INFORMATION
  Report Type: Spontaneous
  Country: BR (occurrence: BR)
  Receive Date: 20160928
  Receipt Date: 20160928
  Transmission Date: 20161109
  Serious: Yes (Other)
  Sender: FDA-Public Use
  Company Number: BR-TORRENT-00003577

PATIENT
  Age: 84 Year
  Sex: Female
  Weight: 65 kg

DRUGS (7)
  1. TORLOS-H (INN:LOSARTAN / HYDROCHLOROTHIAZIDE) [Suspect]
     Active Substance: HYDROCHLOROTHIAZIDE\LOSARTAN
     Indication: HYPERTENSION
     Dosage: 50/ 12.5 MG THREE TIMES DAILY/ ORAL
     Route: 048
     Dates: end: 201608
  2. SOMALIUM [Concomitant]
     Active Substance: BROMAZEPAM
     Indication: SEDATIVE THERAPY
     Dosage: ONCE DAILY/ ORAL
     Route: 048
     Dates: start: 2006
  3. EXODUS [Concomitant]
     Active Substance: ESCITALOPRAM OXALATE
     Indication: APATHY
     Dosage: ONCE DAILY/ ORAL
     Route: 048
     Dates: start: 2013
  4. RUSOVAS [Concomitant]
     Active Substance: ROSUVASTATIN
     Indication: BLOOD CHOLESTEROL INCREASED
     Dosage: ONCE DAILY/ ORAL
     Route: 048
  5. CLOPIDOGREL [Concomitant]
     Active Substance: CLOPIDOGREL BISULFATE
     Indication: ISCHAEMIA
     Dosage: ONCE DAILY
     Dates: start: 2011
  6. PURAN [Concomitant]
     Active Substance: LEVOTHYROXINE SODIUM
     Indication: HYPOTHYROIDISM
     Dosage: ONCE DAILY/ ORAL
     Route: 048
     Dates: start: 2011
  7. BRAND NAME UNSPECIFY (TOPIRAMATE) [Suspect]
     Active Substance: TOPIRAMATE
     Indication: HYPERTENSION
     Dosage: CORUS H 50/ 12.5 MG ONCE DAILY/ ORAL
     Route: 048
     Dates: start: 201608

REACTIONS (3)
  - Angioplasty [Recovered/Resolved]
  - Headache [Not Recovered/Not Resolved]
  - Malaise [Not Recovered/Not Resolved]

NARRATIVE: CASE EVENT DATE: 20160129
